FAERS Safety Report 12760209 (Version 1)
Quarter: 2016Q3

REPORT INFORMATION
  Report Type: Spontaneous
  Country: US (occurrence: US)
  Receive Date: 20160919
  Receipt Date: 20160919
  Transmission Date: 20161109
  Serious: Yes (Hospitalization)
  Sender: FDA-Public Use
  Company Number: US-TEVA-693115USA

PATIENT
  Age: 61 Year
  Sex: Female

DRUGS (2)
  1. LORAZEPAM. [Suspect]
     Active Substance: LORAZEPAM
     Indication: ANXIETY
     Dosage: 2MG DAILY
     Route: 065
  2. BUPRENORPHINE AND NALOXONE [Concomitant]
     Active Substance: BUPRENORPHINE\NALOXONE
     Indication: DRUG ABUSE
     Route: 048

REACTIONS (3)
  - Withdrawal syndrome [Recovered/Resolved]
  - Catatonia [Recovered/Resolved]
  - Stress cardiomyopathy [Recovered/Resolved]
